FAERS Safety Report 17929640 (Version 2)
Quarter: 2021Q1

REPORT INFORMATION
  Report Type: Spontaneous
  Country: US (occurrence: US)
  Receive Date: 20200623
  Receipt Date: 20210303
  Transmission Date: 20210419
  Serious: Yes (Other)
  Sender: FDA-Public Use
  Company Number: US-ALLERGAN-2017970US

PATIENT
  Sex: Female

DRUGS (3)
  1. KYBELLA [Suspect]
     Active Substance: DEOXYCHOLIC ACID
     Indication: SWELLING FACE
     Dosage: 0.8 ML, SINGLE
     Route: 058
     Dates: start: 20190815, end: 20190815
  2. IRON [Concomitant]
     Active Substance: IRON
  3. VITAMIN B12 [Concomitant]
     Active Substance: CYANOCOBALAMIN

REACTIONS (16)
  - Insomnia [Unknown]
  - Asthenopia [Not Recovered/Not Resolved]
  - Injection site erythema [Not Recovered/Not Resolved]
  - Dark circles under eyes [Unknown]
  - Headache [Not Recovered/Not Resolved]
  - Facial pain [Not Recovered/Not Resolved]
  - Dry eye [Unknown]
  - Eye pain [Unknown]
  - Off label use [Unknown]
  - Visual impairment [Not Recovered/Not Resolved]
  - Social problem [Unknown]
  - Vision blurred [Not Recovered/Not Resolved]
  - Crying [Not Recovered/Not Resolved]
  - Deformity [Recovered/Resolved]
  - Eye swelling [Recovered/Resolved with Sequelae]
  - Dermatochalasis [Unknown]

NARRATIVE: CASE EVENT DATE: 201908
